FAERS Safety Report 11121055 (Version 2)
Quarter: 2015Q2

REPORT INFORMATION
  Report Type: Spontaneous
  Country: US (occurrence: None)
  Receive Date: 20150515
  Receipt Date: 20150616
  Transmission Date: 20150821
  Serious: Yes (Other)
  Sender: FDA-Public Use
  Company Number: US-2015VAL000305

PATIENT
  Age: 72 Year
  Sex: Female

DRUGS (14)
  1. AMLODIPINE [Concomitant]
     Active Substance: AMLODIPINE BESYLATE
  2. PRESERVISION AREDS (ASCORBIC ACID, BETACAROTENE, CUPRIC OXIDE, TOCOPHERYL ACETATE, ZINC OXIDE) [Concomitant]
  3. ALPHA LIPOIC ACID (THIOCTIC ACID) [Concomitant]
  4. HYDROXYUREA (HYDROXYCARBAMIDE) [Concomitant]
     Active Substance: HYDROXYUREA
  5. ASPIRIN (ACETYLSALICYLIC ACID) [Concomitant]
     Active Substance: ASPIRIN
  6. LEVOTHYROXINE (LEVOTHYROXINE) [Concomitant]
     Active Substance: LEVOTHYROXINE
  7. MULTIVITAMIN /00097801/ (ASCORBIC ACID, CALCIUM PANTOTHENATE, ERGOCALCIFEROL, NICOTINAMIDE, PYRIDOXINE HYDROCHLORIDE, RETINOL, RIBOFLAVIN, THIAMINE HYDROCHLORIDE) [Concomitant]
  8. SERTRALINE [Concomitant]
     Active Substance: SERTRALINE HYDROCHLORIDE
  9. JAKAFI [Suspect]
     Active Substance: RUXOLITINIB
     Indication: OFF LABEL USE
     Dosage: 5 MG, BID, ORAL
     Route: 048
     Dates: start: 201504
  10. GLIMEPIRIDE (GLIMEPIRIDE) [Concomitant]
     Active Substance: GLIMEPIRIDE
  11. METOPROLOL TARTRATE (METOPROLOL TARTRATE) UNKNOWN [Suspect]
     Active Substance: METOPROLOL TARTRATE
     Indication: PRODUCT USED FOR UNKNOWN INDICATION
     Dates: end: 201504
  12. PRILOSEC (OMEPRAZOLE) [Concomitant]
     Active Substance: OMEPRAZOLE MAGNESIUM
  13. BIOTIN (BIOTIN) [Concomitant]
  14. JAKAFI [Suspect]
     Active Substance: RUXOLITINIB
     Indication: MYELOPROLIFERATIVE DISORDER
     Dosage: 5 MG, BID, ORAL
     Route: 048
     Dates: start: 201504

REACTIONS (4)
  - Dizziness [None]
  - Feeling abnormal [None]
  - Heart rate decreased [None]
  - Platelet count increased [None]

NARRATIVE: CASE EVENT DATE: 201504
